FAERS Safety Report 26080322 (Version 1)
Quarter: 2025Q4

REPORT INFORMATION
  Report Type: Spontaneous
  Country: US (occurrence: US)
  Receive Date: 20251124
  Receipt Date: 20251124
  Transmission Date: 20260117
  Serious: No
  Sender: JOHNSON AND JOHNSON
  Company Number: US-JNJFOC-20251163110

PATIENT
  Age: 54 Year
  Sex: Female

DRUGS (2)
  1. TREMFYA [Suspect]
     Active Substance: GUSELKUMAB
     Indication: Psoriatic arthropathy
     Route: 058
     Dates: start: 20250603
  2. BIMZELX [Concomitant]
     Active Substance: BIMEKIZUMAB-BKZX
     Indication: Product used for unknown indication

REACTIONS (4)
  - Rash [Not Recovered/Not Resolved]
  - Impaired quality of life [Unknown]
  - Pain [Unknown]
  - Headache [Unknown]

NARRATIVE: CASE EVENT DATE: 20251115
